FAERS Safety Report 9380575 (Version 2)
Quarter: 2013Q3

REPORT INFORMATION
  Report Type: Spontaneous
  Country: CN (occurrence: None)
  Receive Date: 20130628
  Receipt Date: 20130705
  Transmission Date: 20140515
  Serious: Yes (Other)
  Sender: FDA-Public Use
  Company Number: INT_00269_2013

PATIENT
  Age: 3 Year
  Sex: Male

DRUGS (7)
  1. TENIPOSIDE [Suspect]
     Indication: ACUTE LYMPHOCYTIC LEUKAEMIA
     Dosage: (DF)
  2. VINCRISTINE (VINCRISTINE) (UNKNOWN) [Suspect]
     Indication: ACUTE LYMPHOCYTIC LEUKAEMIA
     Dosage: (DF)
  3. DAUNOMYCIN [Suspect]
     Indication: ACUTE LYMPHOCYTIC LEUKAEMIA
     Dosage: (DF)?
  4. PREDNISONE (PREDNISONE) [Suspect]
     Indication: ACUTE LYMPHOCYTIC LEUKAEMIA
     Dosage: (DF)
  5. METHOTREXATE (METHOTREXATE) [Suspect]
     Indication: ACUTE LYMPHOCYTIC LEUKAEMIA
     Dosage: (DF)
  6. ARA-C [Suspect]
     Indication: ACUTE LYMPHOCYTIC LEUKAEMIA
     Dosage: (DF)
  7. L-ASPARAGINASE [Suspect]
     Indication: ACUTE LYMPHOCYTIC LEUKAEMIA
     Dosage: (DF)

REACTIONS (5)
  - Epilepsy [None]
  - No therapeutic response [None]
  - Disease recurrence [None]
  - Abdominal discomfort [None]
  - Leukaemic infiltration brain [None]
